FAERS Safety Report 21136835 (Version 4)
Quarter: 2023Q1

REPORT INFORMATION
  Report Type: Report from Study
  Country: DE (occurrence: None)
  Receive Date: 20220727
  Receipt Date: 20230302
  Transmission Date: 20230417
  Serious: Yes (Other)
  Sender: FDA-Public Use
  Company Number: DE-ROCHE-3145366

PATIENT
  Age: 48 Year
  Sex: Female
  Weight: 74 kg

DRUGS (7)
  1. ATEZOLIZUMAB [Suspect]
     Active Substance: ATEZOLIZUMAB
     Indication: Triple negative breast cancer
     Dosage: RECENT DOSE WAS ON 05/MAY/2022
     Route: 042
     Dates: start: 20211206
  2. PACLITAXEL [Suspect]
     Active Substance: PACLITAXEL
     Indication: Triple negative breast cancer
     Dosage: RECENT DOSE WAS ON 24/FEB/2022
     Route: 042
     Dates: start: 20211206
  3. CARBOPLATIN [Suspect]
     Active Substance: CARBOPLATIN
     Indication: Triple negative breast cancer
     Dosage: RECENT DOSE WAS ON 24/FEB/2022
     Route: 042
     Dates: start: 20211206
  4. EPIRUBICIN [Suspect]
     Active Substance: EPIRUBICIN
     Indication: Triple negative breast cancer
     Dosage: RECENT DOSE WAS ON 05/MAY/2022
     Route: 042
     Dates: start: 20220303
  5. CYCLOPHOSPHAMIDE [Suspect]
     Active Substance: CYCLOPHOSPHAMIDE
     Indication: Triple negative breast cancer
     Dosage: RECENT DOSE WAS ON 05/MAY/2022
     Route: 042
     Dates: start: 20220303
  6. LEVOTHYROXINE SODIUM [Concomitant]
     Active Substance: LEVOTHYROXINE SODIUM
     Dates: start: 2011
  7. OLMESARTAN [Concomitant]
     Active Substance: OLMESARTAN
     Dates: start: 202104

REACTIONS (1)
  - Facial paralysis [Recovered/Resolved]

NARRATIVE: CASE EVENT DATE: 20220620
